FAERS Safety Report 8457292-1 (Version None)
Quarter: 2012Q2

REPORT INFORMATION
  Report Type: 
  Country: None (occurrence: None)
  Receive Date: 20120621
  Receipt Date: 20120618
  Transmission Date: 20120825
  Serious: Yes (Life-Threatening, Hospitalization, Other)
  Sender: FDA-Public Use
  Company Number: GB-B.I. PHARMACEUTICALS,INC./RIDGEFIELD-2012-UK-00798UK

PATIENT
  Age: 7 Year
  Sex: Male

DRUGS (10)
  1. GLICLAZIDE [Concomitant]
  2. AMLODIPINE [Concomitant]
  3. LISINOPRIL [Concomitant]
  4. PRADAXA [Suspect]
     Indication: ATRIAL FIBRILLATION
     Dosage: 150 MG
     Route: 048
  5. ASPIRIN [Concomitant]
     Dates: end: 20120514
  6. METFORMIN HCL [Concomitant]
  7. BISOPROLOL [Concomitant]
  8. FLUCLOXACILLIN [Concomitant]
  9. METRONIDAZOLE [Concomitant]
  10. SIMVASTATIN [Concomitant]

REACTIONS (7)
  - LOSS OF CONSCIOUSNESS [None]
  - DIARRHOEA [None]
  - DUODENAL ULCER HAEMORRHAGE [None]
  - FAECES DISCOLOURED [None]
  - GASTROINTESTINAL HAEMORRHAGE [None]
  - SYNCOPE [None]
  - PALLOR [None]
